FAERS Safety Report 17986300 (Version 1)
Quarter: 2020Q3

REPORT INFORMATION
  Report Type: Spontaneous
  Country: US (occurrence: US)
  Receive Date: 20200707
  Receipt Date: 20200707
  Transmission Date: 20201103
  Serious: Yes (Death, Other)
  Sender: FDA-Public Use
  Company Number: US-AMGEN-USASP2020105676

PATIENT
  Age: 26 Year
  Sex: Female

DRUGS (6)
  1. METHOTREXATE. [Concomitant]
     Active Substance: METHOTREXATE
     Indication: OSTEOSARCOMA
     Dosage: UNK (HIGH DOSE)
  2. CISPLATIN. [Concomitant]
     Active Substance: CISPLATIN
     Indication: OSTEOSARCOMA
     Dosage: UNK
  3. PEGFILGRASTIM [Suspect]
     Active Substance: PEGFILGRASTIM
     Indication: NEUTROPENIA
     Dosage: UNK
     Route: 065
  4. GEMCITABINE. [Concomitant]
     Active Substance: GEMCITABINE
     Indication: OSTEOSARCOMA METASTATIC
     Dosage: 675 MILLIGRAM/SQ. METER, CYCLICAL  (21 DAY CYCLE ON DAYS 1 AND 8)
     Route: 042
  5. RIBOCICLIB. [Concomitant]
     Active Substance: RIBOCICLIB
     Indication: OSTEOSARCOMA METASTATIC
     Dosage: 400 MILLIGRAM, CYCLICAL (DAYS 8?14)
     Route: 048
  6. DOXORUBICIN [Concomitant]
     Active Substance: DOXORUBICIN
     Indication: OSTEOSARCOMA
     Dosage: UNK

REACTIONS (3)
  - Thrombocytopenia [Unknown]
  - Magnetic resonance imaging brain abnormal [Unknown]
  - Osteosarcoma metastatic [Fatal]
